FAERS Safety Report 5434310-6 (Version None)
Quarter: 2007Q3

REPORT INFORMATION
  Report Type: 
  Country: None (occurrence: None)
  Receive Date: 20070829
  Receipt Date: 20070822
  Transmission Date: 20080115
  Serious: Yes (Hospitalization)
  Sender: FDA-Public Use
  Company Number: 160366ISR

PATIENT
  Age: 67 Year
  Sex: Male

DRUGS (1)
  1. SIMVASTATIN [Suspect]
     Indication: HYPERLIPIDAEMIA
     Dosage: 40 MG (40 MG, 1 IN 1 D)
     Route: 048
     Dates: start: 20050926

REACTIONS (2)
  - CIRCULATORY COLLAPSE [None]
  - SYNCOPE [None]
